FAERS Safety Report 4380744-0 (Version None)
Quarter: 2004Q2

REPORT INFORMATION
  Report Type: 
  Country: None (occurrence: None)
  Receive Date: 20040614
  Receipt Date: 20040602
  Transmission Date: 20050107
  Serious: Yes (Death)
  Sender: FDA-Public Use
  Company Number: 163-20785-04040325

PATIENT
  Age: 75 Year
  Sex: Male

DRUGS (2)
  1. THALOMID [Suspect]
     Indication: MYELODYSPLASTIC SYNDROME
     Dosage: 50 MG, QD, ORAL
     Route: 048
     Dates: start: 20040321
  2. ARSENIC (ARSENIC COMPOUNDS) [Concomitant]

REACTIONS (2)
  - INTESTINAL PERFORATION [None]
  - SEPSIS [None]
